FAERS Safety Report 5052660-2 (Version None)
Quarter: 2006Q2

REPORT INFORMATION
  Report Type: 
  Country: None (occurrence: None)
  Receive Date: 20060614
  Receipt Date: 20060317
  Transmission Date: 20061013
  Serious: Yes (Other)
  Sender: FDA-Public Use
  Company Number: 440988

PATIENT
  Age: 60 Year
  Sex: Female
  Weight: 90.7 kg

DRUGS (1)
  1. BONIVA [Suspect]
     Indication: OSTEOPOROSIS
     Dosage: 150 MG, 1 PER MONTH, ORAL
     Route: 048
     Dates: start: 20051115

REACTIONS (3)
  - ABDOMINAL DISCOMFORT [None]
  - BONE PAIN [None]
  - SKIN BURNING SENSATION [None]
